FAERS Safety Report 11816587 (Version 1)
Quarter: 2015Q4

REPORT INFORMATION
  Report Type: Spontaneous
  Country: GB (occurrence: GB)
  Receive Date: 20151210
  Receipt Date: 20151210
  Transmission Date: 20160305
  Serious: Yes (Hospitalization)
  Sender: FDA-Public Use
  Company Number: GB-ACCORD-036079

PATIENT
  Age: 18 Year
  Sex: Female
  Weight: 35.9 kg

DRUGS (8)
  1. MELATONIN [Concomitant]
     Active Substance: MELATONIN
  2. GABAPENTIN. [Concomitant]
     Active Substance: GABAPENTIN
  3. CHLORAL HYDRATE/CHLORAL HYDRATE DERIVATIVE [Concomitant]
     Active Substance: CHLORAL HYDRATE
  4. DIAZEPAM. [Concomitant]
     Active Substance: DIAZEPAM
  5. TRAMADOL/TRAMADOL HYDROCHLORIDE [Suspect]
     Active Substance: TRAMADOL HYDROCHLORIDE
     Indication: POSTOPERATIVE ANALGESIA
     Route: 042
     Dates: start: 20151024, end: 20151026
  6. OMEPRAZOLE. [Concomitant]
     Active Substance: OMEPRAZOLE
  7. PARACETAMOL [Concomitant]
     Active Substance: ACETAMINOPHEN
  8. SODIUM FEREDETATE [Concomitant]
     Active Substance: SODIUM FEREDETATE

REACTIONS (2)
  - Hallucination, visual [None]
  - Oculogyric crisis [Recovering/Resolving]

NARRATIVE: CASE EVENT DATE: 20151026
